FAERS Safety Report 18590017 (Version 1)
Quarter: 2020Q4

REPORT INFORMATION
  Report Type: Spontaneous
  Country: US (occurrence: US)
  Receive Date: 20201207
  Receipt Date: 20201207
  Transmission Date: 20210114
  Serious: No
  Sender: FDA-Public Use
  Company Number: None

PATIENT
  Age: 68 Year
  Sex: Female
  Weight: 54.45 kg

DRUGS (14)
  1. RANOLAZINE ER 1000MG, ORAL [Concomitant]
  2. LANTUS SOLOSTAR 100 UNITS/ML, SC [Concomitant]
  3. NOVOLOG FLEXPEN 100 UNIT/ML, SC [Concomitant]
  4. PLAVIX 75MG, ORAL [Concomitant]
  5. ELIQUIS 5MG, ORAL [Concomitant]
  6. ASPIRIN 81MG, ORAL [Concomitant]
  7. SERTRALINE HCL 50MG, ORAL [Concomitant]
  8. LEVAQUIN 500MG, ORAL [Concomitant]
  9. ISOSORBIDE MONONITRATE ER 60MG, ORAL [Concomitant]
  10. METOPROLOL SUCCINATE ER 25MG, ORAL [Concomitant]
  11. LYRICA 50MG, ORAL [Concomitant]
  12. LEVOTHYROXINE 25MCG, ORAL [Concomitant]
  13. VERZENIO [Suspect]
     Active Substance: ABEMACICLIB
     Indication: BREAST CANCER FEMALE
     Dosage: ?          OTHER FREQUENCY:EVERY OTHER DAY;?
     Route: 048
     Dates: start: 20200714
  14. SIMVASTATIN 20MG, ORAL [Concomitant]

REACTIONS (2)
  - Intentional product use issue [None]
  - Blood count abnormal [None]

NARRATIVE: CASE EVENT DATE: 20201207
